FAERS Safety Report 7617642-2 (Version None)
Quarter: 2011Q3

REPORT INFORMATION
  Report Type: 
  Country: None (occurrence: None)
  Receive Date: 20110718
  Receipt Date: 20110706
  Transmission Date: 20111222
  Serious: Yes (Death)
  Sender: FDA-Public Use
  Company Number: US-JNJFOC-20070302399

PATIENT
  Age: 2 Month
  Sex: Male

DRUGS (4)
  1. PSEUDOEPHEDRINE HCL [Suspect]
     Indication: PRODUCT USED FOR UNKNOWN INDICATION
  2. DEXTROMETHORPHAN HYDROBROMIDE [Suspect]
     Indication: PRODUCT USED FOR UNKNOWN INDICATION
  3. METOCLOPRAMIDE [Concomitant]
  4. MULTI-VITAMINS [Concomitant]

REACTIONS (3)
  - DEATH [None]
  - DRUG SCREEN POSITIVE [None]
  - HYPOXIC-ISCHAEMIC ENCEPHALOPATHY [None]
